FAERS Safety Report 16251099 (Version 1)
Quarter: 2019Q2

REPORT INFORMATION
  Report Type: Spontaneous
  Country: ES (occurrence: ES)
  Receive Date: 20190429
  Receipt Date: 20190429
  Transmission Date: 20190711
  Serious: Yes (Other)
  Sender: FDA-Public Use
  Company Number: ES-TEVA-2019-ES-1041997

PATIENT
  Age: 50 Year
  Sex: Male
  Weight: 87 kg

DRUGS (4)
  1. FENTANYL TRANSDERMAL SYSTEM [Suspect]
     Active Substance: FENTANYL
     Indication: INTERVERTEBRAL DISC PROTRUSION
     Dosage: INICIO 1 EVERY 72 HOURS, THEN 1 EVERY 48H, AT THE END 1 / 72H
     Route: 062
     Dates: start: 201901, end: 20190325
  2. AMITRIPTILINA 25 MG 24 COMPRIMIDOS [Concomitant]
     Active Substance: AMITRIPTYLINE
     Route: 048
  3. SEVREDOL 20 MG COMPRIMIDOS RECUBIERTOS CON PELICULA , 12 COMPRIMIDOS [Concomitant]
     Route: 048
  4. GABAPENTINA 100 MG 90 C?PSULAS [Concomitant]
     Route: 048

REACTIONS (1)
  - Dependence [Recovering/Resolving]

NARRATIVE: CASE EVENT DATE: 20190325
